FAERS Safety Report 8851403 (Version 2)
Quarter: 2012Q4

REPORT INFORMATION
  Report Type: Report from Study
  Country: CA (occurrence: CA)
  Receive Date: 20121022
  Receipt Date: 20121123
  Transmission Date: 20130627
  Serious: Yes (Hospitalization, Other)
  Sender: FDA-Public Use
  Company Number: CA-ROCHE-1146994

PATIENT
  Age: 75 None
  Sex: Male
  Weight: 86.4 kg

DRUGS (13)
  1. RITUXIMAB [Suspect]
     Indication: RHEUMATOID ARTHRITIS
     Route: 042
     Dates: start: 20100416
  2. TYLENOL #3 (CANADA) [Concomitant]
  3. DEPO-MEDROL [Concomitant]
  4. METHOTREXATE [Concomitant]
     Route: 048
  5. FOLIC ACID [Concomitant]
  6. BISOPROLOL [Concomitant]
  7. ATACAND [Concomitant]
  8. VITALUX [Concomitant]
  9. CENTRUM [Concomitant]
  10. ADVAIR [Concomitant]
  11. ATORVASTATIN [Concomitant]
  12. MAGNESIUM [Concomitant]
  13. ASPIRIN [Concomitant]
     Route: 048

REACTIONS (3)
  - Fall [Recovered/Resolved]
  - Transient ischaemic attack [Recovered/Resolved]
  - Transient ischaemic attack [Recovered/Resolved]
